FAERS Safety Report 19928464 (Version 1)
Quarter: 2021Q4

REPORT INFORMATION
  Report Type: Spontaneous
  Country: GB (occurrence: GB)
  Receive Date: 20211007
  Receipt Date: 20211007
  Transmission Date: 20220303
  Serious: Yes (Disabling)
  Sender: FDA-Public Use
  Company Number: GB-MAYNE PHARMA-2021MYN000580

PATIENT
  Age: 66 Year
  Sex: Female
  Weight: 79.4 kg

DRUGS (4)
  1. TAMOXIFEN CITRATE [Suspect]
     Active Substance: TAMOXIFEN CITRATE
     Indication: Hormone receptor positive breast cancer
     Dosage: 20 MG
     Route: 048
     Dates: start: 20191224, end: 20210424
  2. ZOMETA [Concomitant]
     Active Substance: ZOLEDRONIC ACID
     Indication: Osteoporosis
     Dosage: 4 MG
     Dates: start: 201902
  3. APIXABAN [Concomitant]
     Active Substance: APIXABAN
     Indication: Product used for unknown indication
     Dosage: 5 MG, PER 2 DAYS
     Dates: start: 201908
  4. CHOLECALCIFEROL [Concomitant]
     Active Substance: CHOLECALCIFEROL
     Indication: Product used for unknown indication
     Dosage: 1600 IU
     Dates: start: 201907

REACTIONS (1)
  - Speech disorder [Recovering/Resolving]

NARRATIVE: CASE EVENT DATE: 20190101
